FAERS Safety Report 4655751-0 (Version None)
Quarter: 2005Q2

REPORT INFORMATION
  Report Type: 
  Country: None (occurrence: None)
  Receive Date: 20050507
  Receipt Date: 20050117
  Transmission Date: 20051028
  Serious: Yes (Hospitalization, Disabling, Other)
  Sender: FDA-Public Use
  Company Number: US-MERCK-0501USA02856

PATIENT
  Age: 61 Year
  Sex: Female
  Weight: 90 kg

DRUGS (4)
  1. VIOXX [Suspect]
     Indication: ARTHRITIS
     Route: 048
     Dates: start: 20030206, end: 20040710
  2. SYNTHROID [Concomitant]
     Route: 065
     Dates: start: 19600101
  3. SYNTHROID [Concomitant]
     Route: 065
     Dates: start: 19600101
  4. PHENOBARBITAL [Concomitant]
     Route: 065

REACTIONS (9)
  - BACK PAIN [None]
  - CORONARY ARTERY DISEASE [None]
  - DEPRESSION [None]
  - FATIGUE [None]
  - HYPERCHOLESTEROLAEMIA [None]
  - HYPERTENSION [None]
  - HYPERTENSIVE CRISIS [None]
  - MYOCARDIAL INFARCTION [None]
  - RETROPERITONEAL HAEMATOMA [None]
